FAERS Safety Report 18717396 (Version 1)
Quarter: 2021Q1

REPORT INFORMATION
  Report Type: Report from Study
  Country: US (occurrence: US)
  Receive Date: 20210108
  Receipt Date: 20210108
  Transmission Date: 20210419
  Serious: Yes (Other)
  Sender: FDA-Public Use
  Company Number: US-BAYER-2021-014941

PATIENT
  Age: 61 Year
  Sex: Female

DRUGS (1)
  1. ADEMPAS [Suspect]
     Active Substance: RIOCIGUAT
     Indication: PULMONARY HYPERTENSION
     Dosage: UNK

REACTIONS (5)
  - Medical procedure [None]
  - Pulmonary arterial pressure increased [None]
  - Tachycardia [None]
  - Blood pressure decreased [None]
  - Lung disorder [None]
